FAERS Safety Report 7877778-8 (Version None)
Quarter: 2011Q4

REPORT INFORMATION
  Report Type: 
  Country: None (occurrence: None)
  Receive Date: 20111031
  Receipt Date: 20111031
  Transmission Date: 20120403
  Serious: Yes (Life-Threatening)
  Sender: FDA-Public Use
  Company Number: None

PATIENT
  Sex: Male
  Weight: 106.59 kg

DRUGS (1)
  1. CHANTIX [Suspect]
     Indication: SMOKING CESSATION THERAPY
     Route: 048
     Dates: start: 20110201, end: 20110401

REACTIONS (6)
  - HOMICIDAL IDEATION [None]
  - SUICIDAL IDEATION [None]
  - ABNORMAL DREAMS [None]
  - AGITATION [None]
  - INSOMNIA [None]
  - DEPRESSION [None]
